FAERS Safety Report 7536765-X (Version None)
Quarter: 2011Q2

REPORT INFORMATION
  Report Type: 
  Country: None (occurrence: None)
  Receive Date: 20110609
  Receipt Date: 20110608
  Transmission Date: 20111010
  Serious: Yes (Hospitalization)
  Sender: FDA-Public Use
  Company Number: CA-ROCHE-631537

PATIENT
  Sex: Female
  Weight: 26.5 kg

DRUGS (13)
  1. TOCILIZUMAB [Suspect]
     Dosage: LAST DOSE PRIOR TO SAE:21 APR 2009; TEMPORARILY INTERRUPTED
     Route: 042
     Dates: start: 20090224, end: 20090421
  2. PREDNISONE [Concomitant]
     Dates: start: 20090118, end: 20090503
  3. PREDNISONE [Concomitant]
     Dates: start: 20090504, end: 20090504
  4. PREDNISONE [Concomitant]
     Dates: start: 20090118, end: 20090406
  5. AMLODIPINE [Concomitant]
     Dates: start: 20060615
  6. PREDNISONE [Concomitant]
     Dates: start: 20090531, end: 20090602
  7. PREDNISONE [Concomitant]
     Dates: start: 20090407, end: 20090410
  8. PREDNISONE [Concomitant]
     Dates: start: 20090515, end: 20090530
  9. HYDROCORTISONE [Concomitant]
     Dates: start: 20090421, end: 20090421
  10. ENALAPRIL MALEATE [Concomitant]
     Dates: start: 20060615
  11. HYDROCORTISONE [Concomitant]
     Dates: start: 20090407, end: 20090407
  12. PREDNISONE [Concomitant]
     Dates: start: 20090603, end: 20090616
  13. PREDNISONE [Concomitant]
     Dates: start: 20090411, end: 20090503

REACTIONS (1)
  - HISTIOCYTOSIS HAEMATOPHAGIC [None]
